FAERS Safety Report 4531929-1 (Version None)
Quarter: 2004Q4

REPORT INFORMATION
  Report Type: 
  Country: None (occurrence: None)
  Receive Date: 20041220
  Receipt Date: 20041208
  Transmission Date: 20050328
  Serious: Yes (Hospitalization)
  Sender: FDA-Public Use
  Company Number: 200421756GDDC

PATIENT
  Age: 46 Year
  Sex: Female

DRUGS (1)
  1. NICODERM [Suspect]
     Dosage: 21MG PER DAY
     Route: 062
     Dates: start: 20031001, end: 20041116

REACTIONS (3)
  - DISORIENTATION [None]
  - DIZZINESS [None]
  - ROAD TRAFFIC ACCIDENT [None]
